FAERS Safety Report 19412174 (Version 1)
Quarter: 2021Q2

REPORT INFORMATION
  Report Type: Report from Study
  Country: FR (occurrence: FR)
  Receive Date: 20210614
  Receipt Date: 20210614
  Transmission Date: 20210717
  Serious: Yes (Life-Threatening, Hospitalization, Disabling, Other)
  Sender: FDA-Public Use
  Company Number: FR-BRISTOL-MYERS SQUIBB COMPANY-BMS-2021-056145

PATIENT
  Age: 45 Year
  Sex: Male

DRUGS (1)
  1. NIVOLUMAB [Suspect]
     Active Substance: NIVOLUMAB
     Indication: NEOPLASM MALIGNANT
     Dosage: 480 MILLIGRAM, QMO
     Route: 042
     Dates: start: 20210105, end: 20210427

REACTIONS (2)
  - Cholecystitis acute [Recovering/Resolving]
  - Pancreatitis acute [Unknown]

NARRATIVE: CASE EVENT DATE: 20210522
